FAERS Safety Report 5052307-5 (Version None)
Quarter: 2006Q3

REPORT INFORMATION
  Report Type: 
  Country: None (occurrence: None)
  Receive Date: 20060717
  Receipt Date: 20060118
  Transmission Date: 20061208
  Serious: Yes (Hospitalization, Other)
  Sender: FDA-Public Use
  Company Number: US-AMGEN-US165808

PATIENT
  Sex: Female

DRUGS (3)
  1. ENBREL [Suspect]
     Indication: DRUG USE FOR UNKNOWN INDICATION
     Route: 058
     Dates: start: 20050201, end: 20050429
  2. MEDROL [Concomitant]
     Dates: start: 20050102
  3. INDOCIN [Concomitant]

REACTIONS (8)
  - APLASTIC ANAEMIA [None]
  - BIOPSY BONE MARROW ABNORMAL [None]
  - BLOOD BILIRUBIN INCREASED [None]
  - HEPATOCELLULAR DAMAGE [None]
  - INTESTINAL HAEMORRHAGE [None]
  - MYOCARDIAL INFARCTION [None]
  - NEUTROPENIA [None]
  - THROMBOCYTOPENIA [None]
